FAERS Safety Report 15690078 (Version 1)
Quarter: 2018Q4

REPORT INFORMATION
  Report Type: Spontaneous
  Country: DE (occurrence: DE)
  Receive Date: 20181205
  Receipt Date: 20181205
  Transmission Date: 20190205
  Serious: Yes (Hospitalization)
  Sender: FDA-Public Use
  Company Number: PHHY2018DE166426

PATIENT
  Age: 75 Year
  Sex: Male
  Weight: 71.6 kg

DRUGS (8)
  1. OXALIPLATIN. [Suspect]
     Active Substance: OXALIPLATIN
     Indication: RECTAL CANCER
     Dosage: 190 MG, CYCLIC
     Route: 042
     Dates: start: 20180716
  2. LEUCOVORIN. [Suspect]
     Active Substance: LEUCOVORIN
     Dosage: 760 MG, CYCLIC
     Route: 042
     Dates: start: 20180730
  3. AFLIBERCEPT [Suspect]
     Active Substance: AFLIBERCEPT
     Indication: RECTAL CANCER
     Dosage: 300 MG, CYCLIC
     Route: 042
     Dates: start: 20180716
  4. FLUOROURACIL. [Suspect]
     Active Substance: FLUOROURACIL
     Dosage: 5320 MG, CYCLIC
     Route: 042
     Dates: start: 20180730
  5. LEUCOVORIN. [Suspect]
     Active Substance: LEUCOVORIN
     Indication: RECTAL CANCER
     Dosage: 760 MG, CYCLIC
     Route: 042
     Dates: start: 20180716, end: 20180716
  6. AFLIBERCEPT [Suspect]
     Active Substance: AFLIBERCEPT
     Dosage: 300 MG, CYCLIC
     Route: 042
     Dates: start: 20180730
  7. OXALIPLATIN. [Suspect]
     Active Substance: OXALIPLATIN
     Dosage: 190 MG, CYCLIC
     Route: 042
     Dates: start: 20180730
  8. FLUOROURACIL. [Suspect]
     Active Substance: FLUOROURACIL
     Indication: RECTAL CANCER
     Dosage: 5320 MG, CYCLIC
     Route: 042
     Dates: start: 20180716

REACTIONS (2)
  - Angina pectoris [Recovered/Resolved]
  - Decreased appetite [Not Recovered/Not Resolved]

NARRATIVE: CASE EVENT DATE: 20180731
